FAERS Safety Report 8962408 (Version 1)
Quarter: 2012Q4

REPORT INFORMATION
  Report Type: Spontaneous
  Country: DK (occurrence: None)
  Receive Date: 20121206
  Receipt Date: 20121206
  Transmission Date: 20130627
  Serious: Yes (Other)
  Sender: FDA-Public Use
  Company Number: 2012MA013803

PATIENT

DRUGS (4)
  1. FEVERALL [Suspect]
     Indication: ROOT ABSCESS
     Dosage: 650 mg rectal suppositories ; QD
     Dates: start: 20120201, end: 20120207
  2. IBUPROFEN [Suspect]
     Indication: ROOT ABSCESS
     Route: 048
     Dates: start: 20120201, end: 20120207
  3. GAVISCON [Concomitant]
  4. ANTACID [Concomitant]

REACTIONS (1)
  - No adverse event [None]
